FAERS Safety Report 25813155 (Version 2)
Quarter: 2025Q4

REPORT INFORMATION
  Report Type: Report from Study
  Country: CA (occurrence: CA)
  Receive Date: 20250917
  Receipt Date: 20251013
  Transmission Date: 20260117
  Serious: Yes (Death, Hospitalization)
  Sender: ABBVIE
  Company Number: CA-JNJFOC-20250837869

PATIENT
  Age: 81 Year
  Sex: Male

DRUGS (2)
  1. IMBRUVICA [Suspect]
     Active Substance: IBRUTINIB
     Indication: Product used for unknown indication
     Route: 048
  2. IMBRUVICA [Suspect]
     Active Substance: IBRUTINIB
     Indication: Product used for unknown indication
     Route: 048

REACTIONS (3)
  - Death [Fatal]
  - Hospitalisation [Unknown]
  - Dysphagia [Unknown]

NARRATIVE: CASE EVENT DATE: 20250915
